FAERS Safety Report 15013783 (Version 1)
Quarter: 2018Q2

REPORT INFORMATION
  Report Type: Spontaneous
  Country: US (occurrence: US)
  Receive Date: 20180614
  Receipt Date: 20180614
  Transmission Date: 20180711
  Serious: No
  Sender: FDA-Public Use
  Company Number: US-BAUSCH-BL-2017-021121

PATIENT
  Age: 54 Year
  Sex: Female
  Weight: 49.94 kg

DRUGS (2)
  1. GENTAMICIN SULFATE OPHTHALMIC SOLUTION USP 0.3% [Suspect]
     Active Substance: GENTAMICIN SULFATE
     Indication: OCULAR ROSACEA
     Dosage: ONE DROP IN LEFT EYE USED TWICE
     Route: 047
     Dates: start: 20170710, end: 201707
  2. AMOXICILLIN. [Concomitant]
     Active Substance: AMOXICILLIN
     Indication: PRODUCT USED FOR UNKNOWN INDICATION

REACTIONS (3)
  - Ocular hyperaemia [Recovered/Resolved]
  - Off label use [Recovered/Resolved]
  - Eye irritation [Recovered/Resolved]

NARRATIVE: CASE EVENT DATE: 20170710
